FAERS Safety Report 18354841 (Version 2)
Quarter: 2020Q4

REPORT INFORMATION
  Report Type: Spontaneous
  Country: US (occurrence: US)
  Receive Date: 20201007
  Receipt Date: 20201023
  Transmission Date: 20210114
  Serious: Yes (Other)
  Sender: FDA-Public Use
  Company Number: US-TEVA-2020-US-1837093

PATIENT

DRUGS (1)
  1. TRAZODONE [Suspect]
     Active Substance: TRAZODONE HYDROCHLORIDE
     Route: 048

REACTIONS (4)
  - Insomnia [Unknown]
  - Therapeutic product effect incomplete [Unknown]
  - Foreign body in throat [Unknown]
  - Product solubility abnormal [Unknown]
